FAERS Safety Report 6191473-5 (Version None)
Quarter: 2009Q2

REPORT INFORMATION
  Report Type: 
  Country: None (occurrence: None)
  Receive Date: 20090515
  Receipt Date: 20090504
  Transmission Date: 20091009
  Serious: Yes (Hospitalization, Other)
  Sender: FDA-Public Use
  Company Number: US-ELI_LILLY_AND_COMPANY-US200608000502

PATIENT
  Sex: Female
  Weight: 112.47 kg

DRUGS (9)
  1. ZYPREXA [Suspect]
     Indication: SCHIZOPHRENIA
     Dosage: 30 MG, UNKNOWN
     Dates: start: 19990601, end: 19990803
  2. ZYPREXA [Suspect]
     Dosage: 20 MG, EACH EVENING
     Dates: start: 19990804, end: 19991101
  3. ZYPREXA [Suspect]
     Dosage: 15 MG, UNK
     Dates: start: 19991101, end: 20010326
  4. ZYPREXA [Suspect]
     Dosage: 12.5 MG, UNK
     Dates: start: 20010326, end: 20021219
  5. ZYPREXA [Suspect]
     Dosage: 10 MG, UNK
     Dates: start: 20021219, end: 20030205
  6. ZYPREXA [Suspect]
     Dosage: 2.5 MG, EACH EVENING
  7. PROZAC [Suspect]
  8. ABILIFY [Concomitant]
     Dosage: UNK, UNKNOWN
     Dates: start: 20030201
  9. SERZONE [Concomitant]
     Dosage: UNK, UNKNOWN
     Dates: start: 19980101, end: 19990101

REACTIONS (20)
  - ALANINE AMINOTRANSFERASE INCREASED [None]
  - BLOOD GLUCOSE INCREASED [None]
  - BLOOD TRIGLYCERIDES INCREASED [None]
  - DIABETIC NEPHROPATHY [None]
  - DIABETIC NEUROPATHY [None]
  - DRUG INEFFECTIVE [None]
  - FEELING ABNORMAL [None]
  - HEPATIC MASS [None]
  - HEPATIC STEATOSIS [None]
  - HYPERGLYCAEMIA [None]
  - HYPOCALCAEMIA [None]
  - HYPOKALAEMIA [None]
  - HYPOMAGNESAEMIA [None]
  - HYPONATRAEMIA [None]
  - NEUTROPHIL COUNT INCREASED [None]
  - OVERDOSE [None]
  - PANCREATITIS [None]
  - PROTEINURIA [None]
  - TYPE 2 DIABETES MELLITUS [None]
  - WHITE BLOOD CELL COUNT INCREASED [None]
